FAERS Safety Report 4809298-9 (Version None)
Quarter: 2005Q4

REPORT INFORMATION
  Report Type: 
  Country: None (occurrence: None)
  Receive Date: 20051021
  Receipt Date: 20051012
  Transmission Date: 20060501
  Serious: Yes (Other)
  Sender: FDA-Public Use
  Company Number: 200512238BWH

PATIENT
  Age: 74 Year
  Sex: Female
  Weight: 54.4316 kg

DRUGS (9)
  1. MYCELEX [Suspect]
     Dosage: ORAL
     Route: 048
  2. PLAVIX [Suspect]
     Dosage: 75 MG, ORAL
     Route: 048
     Dates: start: 20040101
  3. METOCLOPRAMIDE [Suspect]
     Dosage: ORAL
     Route: 048
  4. PROMETHAZINE [Suspect]
     Dosage: ORAL
     Route: 048
  5. LASIX [Suspect]
     Dosage: ORAL
     Route: 048
  6. TIZANIDINE HCL [Suspect]
     Dosage: ORAL
     Route: 048
  7. AMBIEN [Suspect]
  8. CARAFATE [Suspect]
  9. DARVOCET-N 100 [Suspect]

REACTIONS (4)
  - ABDOMINAL DISCOMFORT [None]
  - GASTRIC HAEMORRHAGE [None]
  - INTESTINAL HAEMORRHAGE [None]
  - STOMACH DISCOMFORT [None]
